FAERS Safety Report 18087241 (Version 1)
Quarter: 2020Q3

REPORT INFORMATION
  Report Type: Spontaneous
  Country: ES (occurrence: ES)
  Receive Date: 20200729
  Receipt Date: 20200729
  Transmission Date: 20201103
  Serious: Yes (Other)
  Sender: FDA-Public Use
  Company Number: ALC2020ES006015

PATIENT

DRUGS (7)
  1. ARTIFICIAL TEARS [Suspect]
     Active Substance: GLYCERIN\HYPROMELLOSES\POLYETHYLENE GLYCOL 400
     Indication: CONJUNCTIVITIS VIRAL
     Dosage: UNK
     Route: 031
     Dates: start: 201911
  2. TOBRADEX [Suspect]
     Active Substance: DEXAMETHASONE\TOBRAMYCIN
     Indication: CONJUNCTIVITIS
     Dosage: 3 OT, QD
     Route: 031
  3. MAXIDEX [Suspect]
     Active Substance: DEXAMETHASONE
     Indication: CONJUNCTIVITIS VIRAL
     Dosage: 1 OT, Q12H
     Route: 047
     Dates: start: 201911
  4. MAXIDEX [Suspect]
     Active Substance: DEXAMETHASONE
     Dosage: 1 OT, Q6H
     Route: 047
     Dates: start: 201911
  5. BETADINE [Suspect]
     Active Substance: POVIDONE-IODINE
     Indication: CONJUNCTIVITIS VIRAL
     Dosage: CUTANEOUS SOLUTION; (WASH, EVERY 3?4 HOURS);
     Route: 031
     Dates: start: 201911, end: 201911
  6. ARTIFICIAL TEARS [Suspect]
     Active Substance: GLYCERIN\HYPROMELLOSES\POLYETHYLENE GLYCOL 400
     Indication: DRY EYE
  7. SALINE [SODIUM CHLORIDE] [Suspect]
     Active Substance: SODIUM CHLORIDE
     Indication: CONJUNCTIVITIS VIRAL
     Dosage: UNK (WASH, EVERY 3?4 HOURS);
     Route: 031
     Dates: start: 201911

REACTIONS (9)
  - Cataract [Unknown]
  - Incorrect route of product administration [Unknown]
  - Photophobia [Not Recovered/Not Resolved]
  - Blepharitis [Unknown]
  - Eye irritation [Unknown]
  - Vision blurred [Not Recovered/Not Resolved]
  - Visual impairment [Not Recovered/Not Resolved]
  - Dry eye [Unknown]
  - Eye pain [Unknown]

NARRATIVE: CASE EVENT DATE: 201911
